FAERS Safety Report 9277939 (Version 3)
Quarter: 2013Q2

REPORT INFORMATION
  Report Type: Report from Study
  Country: DE (occurrence: DE)
  Receive Date: 20130508
  Receipt Date: 20130613
  Transmission Date: 20140414
  Serious: Yes (Life-Threatening)
  Sender: FDA-Public Use
  Company Number: DE-ROCHE-GNE283161

PATIENT
  Age: 83 Year
  Sex: Male

DRUGS (3)
  1. ALTEPLASE [Suspect]
     Indication: ISCHAEMIC STROKE
     Dosage: UNK
     Route: 042
  2. ALTEPLASE [Suspect]
     Indication: CEREBROVASCULAR ACCIDENT
  3. ACE-INHIBITORS [Suspect]
     Indication: PRODUCT USED FOR UNKNOWN INDICATION
     Dosage: UNK
     Route: 065

REACTIONS (2)
  - Obstructive airways disorder [Unknown]
  - Angioedema [Unknown]
